FAERS Safety Report 12577139 (Version 1)
Quarter: 2016Q3

REPORT INFORMATION
  Report Type: Spontaneous
  Country: US (occurrence: US)
  Receive Date: 20160720
  Receipt Date: 20160720
  Transmission Date: 20161109
  Serious: No
  Sender: FDA-Public Use
  Company Number: US-PERRIGO-15US006261

PATIENT
  Age: 18 Year
  Sex: Female
  Weight: 66.21 kg

DRUGS (5)
  1. MICONAZOLE 1 [Suspect]
     Active Substance: MICONAZOLE NITRATE
     Indication: VULVOVAGINAL MYCOTIC INFECTION
     Dosage: 1200 MG, SINGLE
     Route: 067
     Dates: start: 20150524, end: 20150524
  2. VITAMIN D                          /00107901/ [Concomitant]
     Active Substance: ERGOCALCIFEROL
     Indication: VITAMIN D DEFICIENCY
     Dosage: UNK
     Route: 065
  3. CONTRACEPTIVES [Concomitant]
     Active Substance: UNSPECIFIED INGREDIENT
     Indication: CONTRACEPTION
     Dosage: UNK
     Route: 065
     Dates: start: 201504
  4. METFORMIN [Concomitant]
     Active Substance: METFORMIN HYDROCHLORIDE
     Indication: POLYCYSTIC OVARIES
     Dosage: UNK
     Route: 065
     Dates: start: 2014
  5. ALBUTEROL                          /00139501/ [Concomitant]
     Active Substance: ALBUTEROL
     Indication: SEASONAL ALLERGY
     Dosage: UNK
     Route: 065

REACTIONS (7)
  - Protein urine present [Unknown]
  - White blood cells urine [Unknown]
  - Vulvovaginal discomfort [Recovering/Resolving]
  - Urine abnormality [Recovered/Resolved]
  - Vaginal discharge [Recovered/Resolved]
  - Vulvovaginal swelling [Recovering/Resolving]
  - Perineal ulceration [Recovering/Resolving]

NARRATIVE: CASE EVENT DATE: 201505
